FAERS Safety Report 4676045-3 (Version None)
Quarter: 2005Q2

REPORT INFORMATION
  Report Type: 
  Country: None (occurrence: None)
  Receive Date: 20050527
  Receipt Date: 20050318
  Transmission Date: 20051028
  Serious: No
  Sender: FDA-Public Use
  Company Number: US-GLAXOSMITHKLINE-A0550433A

PATIENT
  Sex: Male

DRUGS (8)
  1. WELLBUTRIN XL [Suspect]
     Indication: DEPRESSION
     Dosage: 150MG PER DAY
     Route: 048
  2. ESPAZINE [Concomitant]
  3. MYSOLINE [Concomitant]
  4. UNKNOWN MEDICATION [Concomitant]
  5. COGENTIN [Concomitant]
  6. MEVACOR [Concomitant]
  7. GLUCOTROL [Concomitant]
  8. ZITHROMAX [Concomitant]

REACTIONS (2)
  - RENAL IMPAIRMENT [None]
  - TREMOR [None]
